FAERS Safety Report 5720241-0 (Version None)
Quarter: 2008Q2

REPORT INFORMATION
  Report Type: 
  Country: None (occurrence: None)
  Receive Date: 20080423
  Receipt Date: 20071019
  Transmission Date: 20081010
  Serious: Yes (Hospitalization)
  Sender: FDA-Public Use
  Company Number: 243297

PATIENT
  Age: 43 Year
  Sex: Female

DRUGS (3)
  1. AVASTIN [Suspect]
     Indication: NON-SMALL CELL LUNG CANCER STAGE II
     Dosage: 15 MG/KG, Q3W, INTRAVENOUS
     Route: 042
  2. TAXOL [Concomitant]
  3. CARBOPLATIN [Concomitant]

REACTIONS (1)
  - HAEMOPTYSIS [None]
